FAERS Safety Report 25353999 (Version 4)
Quarter: 2025Q3

REPORT INFORMATION
  Report Type: Spontaneous
  Country: US (occurrence: US)
  Receive Date: 20250523
  Receipt Date: 20250811
  Transmission Date: 20251021
  Serious: No
  Sender: SANOFI AVENTIS
  Company Number: US-SA-2025SA146978

PATIENT
  Age: 65 Year
  Sex: Female
  Weight: 72.57 kg

DRUGS (3)
  1. DUPIXENT [Suspect]
     Active Substance: DUPILUMAB
     Indication: Dermatitis atopic
     Route: 058
  2. DUPIXENT [Suspect]
     Active Substance: DUPILUMAB
     Dosage: 300 MG, QOW
     Route: 058
     Dates: end: 20250614
  3. CALCIUM [Concomitant]
     Active Substance: CALCIUM

REACTIONS (10)
  - Bone pain [Recovered/Resolved]
  - Skin depigmentation [Unknown]
  - Joint noise [Unknown]
  - Pain [Unknown]
  - Dyspnoea [Unknown]
  - Skin mass [Not Recovered/Not Resolved]
  - Pruritus [Unknown]
  - Headache [Recovered/Resolved]
  - Cough [Unknown]
  - Speech disorder [Unknown]
